FAERS Safety Report 23991975 (Version 2)
Quarter: 2025Q1

REPORT INFORMATION
  Report Type: Spontaneous
  Country: US (occurrence: US)
  Receive Date: 20240620
  Receipt Date: 20250121
  Transmission Date: 20250409
  Serious: No
  Sender: TEVA
  Company Number: US-TEVA-VS-3200364

PATIENT
  Age: 70 Year
  Sex: Female

DRUGS (2)
  1. AUSTEDO [Suspect]
     Active Substance: DEUTETRABENAZINE
     Indication: Tardive dyskinesia
     Dosage: 12 MG TABLET- TAKE 3 TABLETS BY MOUTH TWICE A DAY
     Route: 048
  2. AUSTEDO [Suspect]
     Active Substance: DEUTETRABENAZINE
     Indication: Tardive dyskinesia
     Dosage: 12 MG 6 TABLES DAILY
     Route: 065

REACTIONS (8)
  - Lip swelling [Unknown]
  - Product dose omission issue [Unknown]
  - Withdrawal syndrome [Unknown]
  - Off label use [Unknown]
  - Restless legs syndrome [Unknown]
  - Insomnia [Unknown]
  - Product use issue [Unknown]
  - Product use issue [Unknown]

NARRATIVE: CASE EVENT DATE: 20240101
